FAERS Safety Report 25791714 (Version 4)
Quarter: 2025Q4

REPORT INFORMATION
  Report Type: Report from Study
  Country: CA (occurrence: CA)
  Receive Date: 20250911
  Receipt Date: 20251119
  Transmission Date: 20260118
  Serious: Yes (Hospitalization, Other)
  Sender: PFIZER
  Company Number: CA-PFIZER INC-202500175996

PATIENT
  Age: 66 Year
  Sex: Female

DRUGS (2)
  1. YUFLYMA [Interacting]
     Active Substance: ADALIMUMAB-AATY
     Indication: Psoriatic arthropathy
     Dosage: 40 MG
     Route: 058
  2. MEASLES-MUMPS-RUBELLA VIRUS VACCINE, LIVE [Interacting]
     Active Substance: MEASLES-MUMPS-RUBELLA VIRUS VACCINE, LIVE
     Indication: Immunisation
     Dosage: UNK

REACTIONS (7)
  - Myocardial infarction [Unknown]
  - Psoriatic arthropathy [Unknown]
  - Labelled drug-drug interaction issue [Unknown]
  - Device malfunction [Unknown]
  - Intentional dose omission [Unknown]
  - Product dose omission issue [Unknown]
  - Therapy interrupted [Unknown]
